FAERS Safety Report 15336961 (Version 2)
Quarter: 2018Q4

REPORT INFORMATION
  Report Type: Spontaneous
  Country: US (occurrence: US)
  Receive Date: 20180831
  Receipt Date: 20181015
  Transmission Date: 20190204
  Serious: No
  Sender: FDA-Public Use
  Company Number: US-LUPIN PHARMACEUTICALS INC.-2018-04954

PATIENT
  Age: 55 Year
  Sex: Female
  Weight: 58.96 kg

DRUGS (2)
  1. LEVOTHYROXINE. [Concomitant]
     Active Substance: LEVOTHYROXINE
     Indication: THYROID DISORDER
     Dosage: UNK
     Route: 065
  2. AMABELZ [Suspect]
     Active Substance: ESTRADIOL\NORETHINDRONE
     Indication: MENOPAUSAL SYMPTOMS
     Dosage: UNK, QD
     Route: 048
     Dates: start: 201802

REACTIONS (1)
  - Alopecia [Not Recovered/Not Resolved]

NARRATIVE: CASE EVENT DATE: 20180601
